FAERS Safety Report 4430794-0 (Version None)
Quarter: 2004Q3

REPORT INFORMATION
  Report Type: 
  Country: None (occurrence: None)
  Receive Date: 20040823
  Receipt Date: 20040812
  Transmission Date: 20050211
  Serious: Yes (Hospitalization)
  Sender: FDA-Public Use
  Company Number: CH-BRISTOL-MYERS SQUIBB COMPANY-12675906

PATIENT
  Age: 76 Year
  Sex: Male

DRUGS (4)
  1. ENDOXAN [Suspect]
     Indication: TONGUE NEOPLASM MALIGNANT STAGE UNSPECIFIED
     Dosage: THERAPY DATES: 03-MAY TO 02-JUN-2004
     Dates: start: 20040602, end: 20040602
  2. DOXORUBICIN HCL [Suspect]
     Indication: TONGUE NEOPLASM MALIGNANT STAGE UNSPECIFIED
     Dosage: THERAPY DATES: 03-MAY TO 02-JUN-2004
     Dates: start: 20040602, end: 20040602
  3. VINCRISTINE [Suspect]
     Indication: TONGUE NEOPLASM MALIGNANT STAGE UNSPECIFIED
     Dosage: THERAPY DATES: 03-MAY TO 02-JUN-2004
     Dates: start: 20040602, end: 20040602
  4. MABTHERA [Suspect]
     Indication: TONGUE NEOPLASM MALIGNANT STAGE UNSPECIFIED
     Dosage: THERAPY DATES: 03-MAY TO 02-JUN-2004
     Dates: start: 20040602, end: 20040602

REACTIONS (6)
  - ALVEOLITIS [None]
  - CANDIDIASIS [None]
  - LEUKOPENIA [None]
  - NEUTROPENIA [None]
  - PHARYNGOLARYNGEAL PAIN [None]
  - PYREXIA [None]
